FAERS Safety Report 9360733 (Version 1)
Quarter: 2013Q2

REPORT INFORMATION
  Report Type: Spontaneous
  Country: US (occurrence: US)
  Receive Date: 20130621
  Receipt Date: 20130621
  Transmission Date: 20140414
  Serious: Yes (Hospitalization)
  Sender: FDA-Public Use
  Company Number: US-ROCHE-1237995

PATIENT
  Age: 69 Year
  Sex: Male

DRUGS (2)
  1. XELODA [Suspect]
     Indication: SMALL INTESTINE CARCINOMA
     Dosage: 2000 MG PO BID
     Route: 048
     Dates: start: 201302, end: 20130514
  2. XELODA [Suspect]
     Indication: RENAL CANCER

REACTIONS (11)
  - Asthenia [Recovering/Resolving]
  - Fall [Recovering/Resolving]
  - Tremor [Recovered/Resolved]
  - Gait disturbance [Recovering/Resolving]
  - Dehydration [Recovering/Resolving]
  - Nausea [Recovered/Resolved]
  - Decreased appetite [Recovered/Resolved]
  - Dizziness [Recovered/Resolved]
  - Full blood count decreased [Recovering/Resolving]
  - Foot fracture [Unknown]
  - Urinary incontinence [Recovering/Resolving]
